FAERS Safety Report 15000465 (Version 5)
Quarter: 2018Q3

REPORT INFORMATION
  Report Type: Spontaneous
  Country: ES (occurrence: ES)
  Receive Date: 20180612
  Receipt Date: 20180904
  Transmission Date: 20181010
  Serious: Yes (Death, Hospitalization)
  Sender: FDA-Public Use
  Company Number: ES-PFIZER INC-2018238421

PATIENT
  Age: 53 Year
  Sex: Female

DRUGS (6)
  1. PREZISTA [Suspect]
     Active Substance: DARUNAVIR ETHANOLATE
     Dosage: 800 MG, 1X/DAY (0?1?0)
     Route: 048
     Dates: start: 20170420
  2. CEFAZOLIN [Concomitant]
     Active Substance: CEFAZOLIN
     Dosage: 2 G, 3X/DAY
     Route: 042
     Dates: start: 20170523, end: 20170630
  3. NEURONTIN [Suspect]
     Active Substance: GABAPENTIN
     Dosage: 300 MG, 3X/DAY (1?1?1)
     Route: 048
     Dates: start: 20170420
  4. NORVIR [Suspect]
     Active Substance: RITONAVIR
     Dosage: 100 MG, 1X/DAY (0?1?0)
     Route: 048
     Dates: start: 20170420
  5. SERTRALINA ALTER [Suspect]
     Active Substance: SERTRALINE HYDROCHLORIDE
     Dosage: UNK
     Route: 048
     Dates: start: 20170420, end: 20170711
  6. ISENTRESS [Suspect]
     Active Substance: RALTEGRAVIR POTASSIUM
     Dosage: 400 MG, 2X/DAY (1?0?1)
     Route: 048
     Dates: start: 20170420

REACTIONS (3)
  - Cerebral infarction [Fatal]
  - Cerebral vasoconstriction [Fatal]
  - Vasculitis cerebral [Fatal]

NARRATIVE: CASE EVENT DATE: 20170702
